FAERS Safety Report 7833476-8 (Version None)
Quarter: 2011Q4

REPORT INFORMATION
  Report Type: 
  Country: None (occurrence: None)
  Receive Date: 20111024
  Receipt Date: 20111019
  Transmission Date: 20120403
  Serious: Yes (Death, Other)
  Sender: FDA-Public Use
  Company Number: CN-ASTELLAS-2011US006880

PATIENT
  Sex: Male

DRUGS (1)
  1. TARCEVA [Suspect]
     Indication: LUNG NEOPLASM MALIGNANT
     Dosage: 150 MG, UID/QD
     Route: 048
     Dates: start: 20111008, end: 20111015

REACTIONS (7)
  - ILEUS [None]
  - SENSORY LOSS [None]
  - DIARRHOEA [None]
  - DYSPNOEA [None]
  - ASCITES [None]
  - DEATH [None]
  - ASTHENIA [None]
